FAERS Safety Report 13986828 (Version 1)
Quarter: 2017Q3

REPORT INFORMATION
  Report Type: Spontaneous
  Country: US (occurrence: US)
  Receive Date: 20170919
  Receipt Date: 20170919
  Transmission Date: 20171128
  Serious: Yes (Hospitalization, Other)
  Sender: FDA-Public Use
  Company Number: US-MYLANLABS-2017M1057520

PATIENT
  Age: 47 Year
  Sex: Male

DRUGS (2)
  1. CYCLOPHOSPHAMIDE. [Suspect]
     Active Substance: CYCLOPHOSPHAMIDE
     Indication: HEPATOSPLENIC T-CELL LYMPHOMA
     Dosage: 300 MG/M2 ON DAY 1
     Route: 065
  2. PENTOSTATIN. [Suspect]
     Active Substance: PENTOSTATIN
     Indication: HEPATOSPLENIC T-CELL LYMPHOMA
     Dosage: 5 MG/M2 ON DAYS 1 TO 3
     Route: 065

REACTIONS (3)
  - Glomerulonephritis membranoproliferative [Unknown]
  - Renal failure [Unknown]
  - Respiratory distress [Unknown]
